FAERS Safety Report 8503220 (Version 11)
Quarter: 2014Q1

REPORT INFORMATION
  Report Type: Spontaneous
  Country: US (occurrence: US)
  Receive Date: 20120411
  Receipt Date: 20140221
  Transmission Date: 20141002
  Serious: Yes (Death, Hospitalization, Other)
  Sender: FDA-Public Use
  Company Number: US-JNJFOC-20120403256

PATIENT
  Age: 40 Year
  Sex: Female

DRUGS (6)
  1. TYLENOL ANALGESIC UNKNOWN [Suspect]
     Route: 048
  2. TYLENOL ANALGESIC UNKNOWN [Suspect]
     Indication: PAIN
     Route: 048
     Dates: start: 200702
  3. RITALIN [Concomitant]
     Indication: PRODUCT USED FOR UNKNOWN INDICATION
     Route: 065
     Dates: start: 20100129
  4. INVEGA [Concomitant]
     Indication: PRODUCT USED FOR UNKNOWN INDICATION
     Route: 065
     Dates: start: 20100129
  5. SEROQUEL [Concomitant]
     Indication: PRODUCT USED FOR UNKNOWN INDICATION
     Route: 048
  6. TEGRETOL [Concomitant]
     Indication: PRODUCT USED FOR UNKNOWN INDICATION
     Route: 048

REACTIONS (11)
  - Death [Fatal]
  - Acute hepatic failure [Unknown]
  - Hepatic encephalopathy [Unknown]
  - Respiratory failure [Unknown]
  - Bile duct stone [Recovered/Resolved]
  - Pancreatitis relapsing [Recovered/Resolved]
  - Hypotension [Recovered/Resolved]
  - Toxicity to various agents [Unknown]
  - Metabolic acidosis [Unknown]
  - Shock [Unknown]
  - Coagulopathy [Unknown]
